FAERS Safety Report 6508509-1 (Version None)
Quarter: 2009Q4

REPORT INFORMATION
  Report Type: 
  Country: None (occurrence: None)
  Receive Date: 20091221
  Receipt Date: 20081119
  Transmission Date: 20100525
  Serious: No
  Sender: FDA-Public Use
  Company Number: US-ASTRAZENECA-2008UW25967

PATIENT
  Age: 60 Year
  Sex: Male
  Weight: 80.7 kg

DRUGS (10)
  1. CRESTOR [Suspect]
     Indication: BLOOD CHOLESTEROL
     Route: 048
     Dates: start: 20051101
  2. DIOVAN [Concomitant]
     Dosage: TWO TIMES A DAY
  3. METOPROLOL TARTRATE [Concomitant]
  4. PREVACID [Concomitant]
  5. GLIPIZIDE [Concomitant]
  6. AMLODIPINE [Concomitant]
  7. NITRO-TABS [Concomitant]
     Dosage: AS NEEDED
  8. PLAVIX [Concomitant]
     Dosage: 75 MG
  9. ASPIRIN [Concomitant]
     Dosage: 325 MG
  10. MIDOL [Concomitant]
     Dosage: 220 MG

REACTIONS (1)
  - BLOOD PRESSURE INCREASED [None]
